FAERS Safety Report 13363794 (Version 1)
Quarter: 2017Q1

REPORT INFORMATION
  Report Type: Spontaneous
  Country: US (occurrence: US)
  Receive Date: 20170323
  Receipt Date: 20170323
  Transmission Date: 20170429
  Serious: Yes (Other)
  Sender: FDA-Public Use
  Company Number: US-FRESENIUS KABI-FK201702414

PATIENT
  Age: 3 Month
  Sex: Male

DRUGS (1)
  1. FLUOROURACIL (MANUFACTURER UNKNOWN) [Suspect]
     Active Substance: FLUOROURACIL
     Indication: DEVELOPMENTAL GLAUCOMA
     Route: 050

REACTIONS (1)
  - Corneal opacity [Recovered/Resolved]
